FAERS Safety Report 9681922 (Version 1)
Quarter: 2013Q4

REPORT INFORMATION
  Report Type: Spontaneous
  Country: IN (occurrence: IN)
  Receive Date: 20131111
  Receipt Date: 20131111
  Transmission Date: 20140711
  Serious: Yes (Hospitalization)
  Sender: FDA-Public Use
  Company Number: PHHY2013IN125835

PATIENT
  Age: 36 Year
  Sex: Male

DRUGS (2)
  1. SUXAMETHONIUM CHLORIDE [Suspect]
     Indication: INDUCTION OF ANAESTHESIA
     Dosage: 100 MG, UNK
     Route: 042
  2. THIOPENTAL SODIUM [Concomitant]
     Indication: INDUCTION OF ANAESTHESIA

REACTIONS (5)
  - Muscle rigidity [Unknown]
  - Blood potassium increased [Unknown]
  - Blood creatine phosphokinase increased [Unknown]
  - Bruxism [Unknown]
  - Muscle spasms [Unknown]
